FAERS Safety Report 24885949 (Version 1)
Quarter: 2025Q1

REPORT INFORMATION
  Report Type: Spontaneous
  Country: US (occurrence: US)
  Receive Date: 20250125
  Receipt Date: 20250125
  Transmission Date: 20250409
  Serious: No
  Sender: SANOFI AVENTIS
  Company Number: US-SA-2025SA022426

PATIENT
  Sex: Male
  Weight: 100 kg

DRUGS (7)
  1. DUPIXENT [Suspect]
     Active Substance: DUPILUMAB
     Indication: Dermatitis atopic
     Dosage: 300 MG, QOW
     Route: 058
  2. CREATINE [Concomitant]
     Active Substance: CREATINE
  3. MONTELUKAST SODIUM [Concomitant]
     Active Substance: MONTELUKAST SODIUM
  4. VITAMIN D3 K2 [Concomitant]
  5. FISH OIL [Concomitant]
     Active Substance: FISH OIL
  6. VITAMIN D3 [Concomitant]
     Active Substance: CHOLECALCIFEROL
  7. VITAMINS [Concomitant]
     Active Substance: VITAMINS

REACTIONS (10)
  - Dandruff [Recovered/Resolved]
  - Weight increased [Unknown]
  - Periorbital irritation [Recovering/Resolving]
  - Skin irritation [Recovering/Resolving]
  - Sinusitis [Unknown]
  - Dermatitis atopic [Unknown]
  - Dry skin [Unknown]
  - Rash [Unknown]
  - Scratch [Unknown]
  - Skin exfoliation [Unknown]
